FAERS Safety Report 8686110 (Version 2)
Quarter: 2015Q1

REPORT INFORMATION
  Report Type: Spontaneous
  Country: US (occurrence: US)
  Receive Date: 20120726
  Receipt Date: 20150119
  Transmission Date: 20150721
  Serious: No
  Sender: FDA-Public Use
  Company Number: US-ASTRAZENECA-2011SE59546

PATIENT
  Age: 21569 Day
  Sex: Male
  Weight: 108.9 kg

DRUGS (18)
  1. TAMSULOSIN HCL [Concomitant]
     Active Substance: TAMSULOSIN
     Indication: PROSTATIC DISORDER
     Route: 048
  2. GLUNECTA [Concomitant]
     Indication: DIABETES MELLITUS
     Route: 048
  3. SIMVASTATIN. [Concomitant]
     Active Substance: SIMVASTATIN
     Indication: BLOOD CHOLESTEROL
     Route: 048
  4. MELATONIN [Concomitant]
     Active Substance: MELATONIN
     Indication: SLEEP DISORDER
     Route: 048
  5. SEROQUEL [Suspect]
     Active Substance: QUETIAPINE FUMARATE
     Indication: BIPOLAR DISORDER
     Route: 048
  6. GEODON [Concomitant]
     Active Substance: ZIPRASIDONE HYDROCHLORIDE\ZIPRASIDONE MESYLATE
     Indication: BIPOLAR DISORDER
     Route: 048
  7. ANDROGEL [Concomitant]
     Active Substance: TESTOSTERONE
     Indication: THERMAL BURN
     Route: 061
  8. MULT VITAMIN [Concomitant]
     Route: 048
  9. LISINOPRIL. [Suspect]
     Active Substance: LISINOPRIL
     Indication: HYPERTENSION
     Route: 048
  10. VITAMIN D [Concomitant]
     Active Substance: CHOLECALCIFEROL
     Route: 048
  11. LUNESTA [Concomitant]
     Active Substance: ESZOPICLONE
     Indication: SLEEP DISORDER
  12. DEPOKEN ER [Concomitant]
     Indication: BIPOLAR DISORDER
     Route: 048
  13. TAMSULOSIN HCL [Concomitant]
     Active Substance: TAMSULOSIN
     Indication: GASTROOESOPHAGEAL REFLUX DISEASE
     Route: 048
  14. TRICOR [Concomitant]
     Active Substance: FENOFIBRATE
     Indication: BLOOD TRIGLYCERIDES
     Route: 048
  15. OMEPRAZOLE. [Suspect]
     Active Substance: OMEPRAZOLE
     Indication: PROSTATIC DISORDER
     Route: 048
  16. OMEPRAZOLE. [Suspect]
     Active Substance: OMEPRAZOLE
     Indication: GASTROOESOPHAGEAL REFLUX DISEASE
     Route: 048
  17. VITAMIN E [Concomitant]
     Active Substance: .ALPHA.-TOCOPHEROL
     Route: 048
  18. FLUSH FREE NIACIN [Concomitant]

REACTIONS (23)
  - Prostatic disorder [Unknown]
  - Somnolence [Unknown]
  - Insomnia [Unknown]
  - Sleep apnoea syndrome [Unknown]
  - Thirst [Unknown]
  - Weight increased [Unknown]
  - Hypertension [Unknown]
  - Anxiety [Unknown]
  - Panic attack [Unknown]
  - Cardiac disorder [Unknown]
  - Adverse event [Unknown]
  - Adverse drug reaction [Unknown]
  - Blood cholesterol increased [Unknown]
  - Dry mouth [Unknown]
  - Type 2 diabetes mellitus [Unknown]
  - Sleep disorder [Unknown]
  - Sexual dysfunction [Unknown]
  - Drug dose omission [Unknown]
  - Drug dependence [Unknown]
  - Accident [Unknown]
  - Bipolar disorder [Unknown]
  - Blood testosterone decreased [Unknown]
  - Blood triglycerides increased [Unknown]

NARRATIVE: CASE EVENT DATE: 20130221
